FAERS Safety Report 10273715 (Version 1)
Quarter: 2014Q2

REPORT INFORMATION
  Report Type: Spontaneous
  Country: FR (occurrence: None)
  Receive Date: 20140630
  Receipt Date: 20140630
  Transmission Date: 20141212
  Serious: Yes (Hospitalization)
  Sender: FDA-Public Use
  Company Number: FR-016102

PATIENT
  Age: 32 Year
  Sex: Female

DRUGS (3)
  1. DECAPEPTYL [Suspect]
     Indication: IN VITRO FERTILISATION
     Route: 030
     Dates: start: 2013
  2. MENOPUR (MENOPUR) 75 IU [Suspect]
     Indication: IN VITRO FERTILISATION
     Route: 058
     Dates: start: 20130912, end: 20130922
  3. OVITRELLE [Suspect]
     Indication: IN VITRO FERTILISATION
     Dosage: 1 DF QD, SUBCUTANEOUS
     Route: 058
     Dates: start: 20130929

REACTIONS (3)
  - Ovarian hyperstimulation syndrome [None]
  - Ascites [None]
  - Dyspnoea [None]
